FAERS Safety Report 21837210 (Version 1)
Quarter: 2023Q1

REPORT INFORMATION
  Report Type: Report from Study
  Country: CA (occurrence: CA)
  Receive Date: 20230109
  Receipt Date: 20230109
  Transmission Date: 20230418
  Serious: Yes (Other)
  Sender: FDA-Public Use
  Company Number: CA-JNJFOC-20230109166

PATIENT
  Age: 15 Year
  Sex: Female
  Weight: 75 kg

DRUGS (1)
  1. REMICADE [Suspect]
     Active Substance: INFLIXIMAB
     Indication: Colitis ulcerative
     Dosage: ON 04-JAN-2023, RECEIVED 56TH INFLIXIMAB, RECOMBINANT INFUSION OF 400 MG AND PARTIAL MAYO COMPLETED.
     Route: 041
     Dates: start: 20160308

REACTIONS (2)
  - Haematochezia [Not Recovered/Not Resolved]
  - Off label use [Unknown]

NARRATIVE: CASE EVENT DATE: 20160308
